FAERS Safety Report 22359403 (Version 1)
Quarter: 2023Q2

REPORT INFORMATION
  Report Type: Other
  Country: CA (occurrence: CA)
  Receive Date: 20230524
  Receipt Date: 20230524
  Transmission Date: 20230721
  Serious: Yes (Hospitalization, Other)
  Sender: FDA-Public Use
  Company Number: CA-GLENMARK PHARMACEUTICALS-2023GMK082014

PATIENT

DRUGS (1)
  1. DROSPIRENONE\ETHINYL ESTRADIOL [Suspect]
     Active Substance: DROSPIRENONE\ETHINYL ESTRADIOL
     Indication: Contraception
     Dosage: UNK
     Route: 048

REACTIONS (6)
  - Visual field defect [Unknown]
  - Solar lentigo [Unknown]
  - Migraine with aura [Unknown]
  - Asthenia [Unknown]
  - Hypoaesthesia [Unknown]
  - Ischaemic stroke [Unknown]
